FAERS Safety Report 20511237 (Version 2)
Quarter: 2024Q2

REPORT INFORMATION
  Report Type: Spontaneous
  Country: US (occurrence: US)
  Receive Date: 20220224
  Receipt Date: 20240513
  Transmission Date: 20240716
  Serious: No
  Sender: FDA-Public Use
  Company Number: US-CIPLA LTD.-2022US00974

PATIENT

DRUGS (1)
  1. METOPROLOL [Suspect]
     Active Substance: METOPROLOL
     Indication: Atrial fibrillation
     Dosage: UNK
     Route: 065

REACTIONS (11)
  - Drug ineffective for unapproved indication [Unknown]
  - Off label use [Unknown]
  - Chest discomfort [Unknown]
  - Abdominal discomfort [Unknown]
  - Adverse drug reaction [Unknown]
  - Anxiety [Unknown]
  - Headache [Unknown]
  - Dizziness [Unknown]
  - Palpitations [Unknown]
  - Dyspnoea [Unknown]
  - Fatigue [Unknown]
